FAERS Safety Report 7681069-8 (Version None)
Quarter: 2011Q3

REPORT INFORMATION
  Report Type: 
  Country: None (occurrence: None)
  Receive Date: 20110809
  Receipt Date: 20110727
  Transmission Date: 20111222
  Serious: Yes (Death, Hospitalization)
  Sender: FDA-Public Use
  Company Number: 2011MA010044

PATIENT
  Age: 92 Year
  Sex: Male

DRUGS (11)
  1. LORTAB [Concomitant]
  2. DIGOXIN [Suspect]
     Dosage: .250 MG;QD;PO
     Route: 048
     Dates: start: 20020223, end: 20080420
  3. KEFLEX [Concomitant]
  4. LASIX [Concomitant]
  5. PRILOSEC [Concomitant]
  6. BACTROBAN [Concomitant]
  7. DYAZIDE [Concomitant]
  8. PREDNISONE [Concomitant]
  9. WARFARIN SODIUM [Concomitant]
  10. LANOXIN [Concomitant]
  11. METOLAZONE [Concomitant]

REACTIONS (29)
  - ECONOMIC PROBLEM [None]
  - VOMITING [None]
  - CORONARY ARTERY DISEASE [None]
  - UNEVALUABLE EVENT [None]
  - ILEUS [None]
  - RENAL CYST [None]
  - PAIN [None]
  - SMALL INTESTINAL OBSTRUCTION [None]
  - DEEP VEIN THROMBOSIS [None]
  - AORTIC ANEURYSM [None]
  - ANAEMIA OF CHRONIC DISEASE [None]
  - THROMBOCYTOPENIA [None]
  - SPINAL OSTEOARTHRITIS [None]
  - RENAL FAILURE CHRONIC [None]
  - CARDIAC FAILURE CONGESTIVE [None]
  - CARDIO-RESPIRATORY ARREST [None]
  - HEPATIC STEATOSIS [None]
  - CHOLELITHIASIS [None]
  - ANXIETY [None]
  - GASTROENTERITIS [None]
  - SPONDYLOLISTHESIS [None]
  - HEART INJURY [None]
  - ABDOMINAL DISCOMFORT [None]
  - HYPOKALAEMIA [None]
  - ARTHRITIS [None]
  - VENOUS INSUFFICIENCY [None]
  - PNEUMONIA [None]
  - ARTERIOSCLEROSIS [None]
  - PROSTATOMEGALY [None]
